FAERS Safety Report 6150813-3 (Version None)
Quarter: 2009Q2

REPORT INFORMATION
  Report Type: 
  Country: None (occurrence: None)
  Receive Date: 20090408
  Receipt Date: 20090320
  Transmission Date: 20091009
  Serious: Yes (Death, Hospitalization)
  Sender: FDA-Public Use
  Company Number: 2009AL001701

PATIENT
  Age: 53 Year
  Sex: Male

DRUGS (7)
  1. DIGOXIN [Suspect]
     Dosage: 0.25MG, DAILY, PO
     Route: 048
  2. ASPIRIN [Concomitant]
  3. ACCUPRIL [Concomitant]
  4. TOPROL-XL [Concomitant]
  5. LIPITOR [Concomitant]
  6. COUMADIN [Concomitant]
  7. NITROGLYCERIN [Concomitant]

REACTIONS (7)
  - CHEST DISCOMFORT [None]
  - DIZZINESS [None]
  - ECONOMIC PROBLEM [None]
  - EMOTIONAL DISORDER [None]
  - FEELING ABNORMAL [None]
  - MYOCARDIAL INFARCTION [None]
  - PAIN [None]
